FAERS Safety Report 12260930 (Version 1)
Quarter: 2016Q2

REPORT INFORMATION
  Report Type: Report from Study
  Country: VE (occurrence: VE)
  Receive Date: 20160412
  Receipt Date: 20160412
  Transmission Date: 20160815
  Serious: Yes (Other)
  Sender: FDA-Public Use
  Company Number: PHHY2016VE048500

PATIENT
  Sex: Female

DRUGS (3)
  1. AFINITOR [Suspect]
     Active Substance: EVEROLIMUS
     Indication: BREAST CANCER
     Dosage: 10 MG, QD
     Route: 048
     Dates: start: 20150120, end: 20160408
  2. AROMASIN [Concomitant]
     Active Substance: EXEMESTANE
     Indication: HORMONE LEVEL ABNORMAL
     Dosage: 5 MG, QD
     Route: 065
     Dates: start: 20160201
  3. ANASTROZOL [Concomitant]
     Active Substance: ANASTROZOLE
     Indication: PRODUCT USED FOR UNKNOWN INDICATION
     Route: 065

REACTIONS (3)
  - Hepatic lesion [Not Recovered/Not Resolved]
  - Sluggishness [Not Recovered/Not Resolved]
  - Visual impairment [Not Recovered/Not Resolved]
